FAERS Safety Report 9696787 (Version 2)
Quarter: 2013Q4

REPORT INFORMATION
  Report Type: Spontaneous
  Country: US (occurrence: US)
  Receive Date: 20131119
  Receipt Date: 20131119
  Transmission Date: 20140711
  Serious: Yes (Other)
  Sender: FDA-Public Use
  Company Number: US-GILEAD-2007-0014362

PATIENT
  Age: 52 Year
  Sex: Female
  Weight: 86.18 kg

DRUGS (10)
  1. LETAIRIS [Suspect]
     Indication: PULMONARY ARTERIAL HYPERTENSION
     Route: 048
     Dates: start: 20070912
  2. PROTONIX [Concomitant]
     Indication: GASTROOESOPHAGEAL REFLUX DISEASE
     Route: 048
  3. ADVAIR [Concomitant]
     Indication: ASTHMA
     Route: 055
  4. XOPENEX [Concomitant]
     Indication: ASTHMA
     Route: 055
  5. CLONIDINE [Concomitant]
     Indication: HYPERTENSION
     Route: 062
  6. DEMADEX [Concomitant]
     Indication: HYPERTENSION
     Route: 048
  7. GLUCOPHAGE [Concomitant]
     Indication: TYPE 1 DIABETES MELLITUS
     Dosage: BEFORE MEALS
     Route: 048
  8. LIPITOR [Concomitant]
     Indication: HYPERCHOLESTEROLAEMIA
     Dosage: AT BEDTIME
     Route: 048
  9. ZETIA [Concomitant]
     Indication: HYPERCHOLESTEROLAEMIA
     Route: 048
  10. ELAVIL [Concomitant]
     Indication: MIGRAINE
     Dosage: AS NEEDED AND AT BEDTIME
     Route: 048

REACTIONS (2)
  - Nasal congestion [Not Recovered/Not Resolved]
  - Oedema peripheral [Not Recovered/Not Resolved]
